FAERS Safety Report 22894103 (Version 2)
Quarter: 2024Q1

REPORT INFORMATION
  Report Type: Report from Study
  Country: CA (occurrence: CA)
  Receive Date: 20230901
  Receipt Date: 20240206
  Transmission Date: 20240409
  Serious: Yes (Other)
  Sender: FDA-Public Use
  Company Number: CA-MYLANLABS-2022M1114012

PATIENT

DRUGS (1)
  1. HULIO [Suspect]
     Active Substance: ADALIMUMAB-FKJP
     Indication: Crohn^s disease
     Dosage: 40 MILLIGRAM, Q2W (14 DAYS)
     Route: 058
     Dates: start: 20211031

REACTIONS (5)
  - Rectal haemorrhage [Unknown]
  - Rectal tenesmus [Unknown]
  - Abdominal pain [Unknown]
  - Social problem [Unknown]
  - Overdose [Unknown]
